FAERS Safety Report 5338037-0 (Version None)
Quarter: 2007Q2

REPORT INFORMATION
  Report Type: 
  Country: None (occurrence: None)
  Receive Date: 20070530
  Receipt Date: 20070518
  Transmission Date: 20071010
  Serious: Yes (Other)
  Sender: FDA-Public Use
  Company Number: PHEH2007US06080

PATIENT
  Age: 43 Year
  Sex: Female

DRUGS (1)
  1. ZELNORM [Suspect]
     Dosage: 6 MG, BID
     Route: 048
     Dates: start: 20050101

REACTIONS (3)
  - CHEST PAIN [None]
  - FLUID OVERLOAD [None]
  - PERICARDIAL EFFUSION [None]
